FAERS Safety Report 6706761-0 (Version None)
Quarter: 2010Q2

REPORT INFORMATION
  Report Type: 
  Country: None (occurrence: None)
  Receive Date: 20100503
  Receipt Date: 20100420
  Transmission Date: 20101027
  Serious: Yes (Death, Other)
  Sender: FDA-Public Use
  Company Number: US-GENZYME-CLOF-1000887

PATIENT
  Sex: Female
  Weight: 68.1 kg

DRUGS (6)
  1. CLOLAR [Suspect]
     Indication: ACUTE MYELOID LEUKAEMIA
     Dosage: 20 MG, QD
     Route: 042
     Dates: start: 20090514, end: 20090515
  2. CLOLAR [Suspect]
     Dosage: 20 MG, QDX3
     Route: 042
     Dates: start: 20090516, end: 20090518
  3. GEMTUZUMAB OZOGAMICIN [Suspect]
     Indication: ACUTE MYELOID LEUKAEMIA
     Dosage: 3 MG/M2, QD
     Route: 065
     Dates: start: 20090514, end: 20090520
  4. VANCOMYCIN [Concomitant]
     Indication: SEPSIS
     Dosage: 1 G, TID
     Route: 042
     Dates: start: 20090513, end: 20090616
  5. MICAFUNGIN [Concomitant]
     Indication: SEPSIS
     Dosage: 100 MG, QD
     Route: 042
     Dates: start: 20090513, end: 20090611
  6. AMBISOME [Concomitant]
     Indication: SEPSIS
     Dosage: 340 MG, QD
     Route: 042
     Dates: start: 20090611, end: 20090616

REACTIONS (7)
  - BLOOD ALKALINE PHOSPHATASE INCREASED [None]
  - GAMMA-GLUTAMYLTRANSFERASE INCREASED [None]
  - HYPOCALCAEMIA [None]
  - LYMPHOPENIA [None]
  - NEUTROPENIA [None]
  - SEPSIS [None]
  - THROMBOCYTOPENIA [None]
